FAERS Safety Report 16466993 (Version 1)
Quarter: 2019Q2

REPORT INFORMATION
  Report Type: Report from Study
  Country: None (occurrence: US)
  Receive Date: 20190624
  Receipt Date: 20190624
  Transmission Date: 20190711
  Serious: Yes (Other)
  Sender: FDA-Public Use
  Company Number: US-ABBVIE-19K-163-2793905-00

PATIENT
  Sex: Male

DRUGS (1)
  1. HUMIRA [Suspect]
     Active Substance: ADALIMUMAB
     Indication: RHEUMATOID ARTHRITIS
     Route: 058
     Dates: start: 20180817

REACTIONS (18)
  - Joint stiffness [Unknown]
  - Urinary hesitation [Unknown]
  - Hepatic steatosis [Unknown]
  - Oedema peripheral [Not Recovered/Not Resolved]
  - Gait disturbance [Unknown]
  - Musculoskeletal stiffness [Unknown]
  - Impaired self-care [Unknown]
  - Loss of personal independence in daily activities [Unknown]
  - Impaired healing [Unknown]
  - Arthralgia [Unknown]
  - Dysuria [Unknown]
  - Depression [Unknown]
  - Cholelithiasis [Unknown]
  - Atrioventricular block [Unknown]
  - Joint swelling [Unknown]
  - Swelling [Unknown]
  - Pain [Unknown]
  - Musculoskeletal pain [Unknown]

NARRATIVE: CASE EVENT DATE: 2019
